FAERS Safety Report 16070532 (Version 1)
Quarter: 2019Q1

REPORT INFORMATION
  Report Type: Spontaneous
  Country: US (occurrence: US)
  Receive Date: 20190212
  Receipt Date: 20190212
  Transmission Date: 20190418
  Serious: Yes (Life-Threatening, Hospitalization)
  Sender: FDA-Public Use
  Company Number: None

PATIENT
  Age: 69 Year
  Sex: Male
  Weight: 84.69 kg

DRUGS (12)
  1. ATORVASTATIN CALCIUM. [Concomitant]
     Active Substance: ATORVASTATIN CALCIUM
  2. ASPIRIN. [Concomitant]
     Active Substance: ASPIRIN
  3. VITAMIN D [Concomitant]
     Active Substance: CHOLECALCIFEROL
  4. TAMSULOSIN [Concomitant]
     Active Substance: TAMSULOSIN
  5. INSULIN (LANTUS) [Concomitant]
  6. FUROSEMIDE. [Concomitant]
     Active Substance: FUROSEMIDE
  7. FINASTERIDE. [Concomitant]
     Active Substance: FINASTERIDE
  8. ALBUTEROL (INHALER) [Concomitant]
  9. ONGLYZA [Suspect]
     Active Substance: SAXAGLIPTIN HYDROCHLORIDE
     Indication: DIABETES MELLITUS
     Dosage: ?          QUANTITY:1 DF DOSAGE FORM;?
     Route: 048
     Dates: start: 20190107, end: 20190122
  10. ELIQUIS [Concomitant]
     Active Substance: APIXABAN
  11. METOPROLOL. [Concomitant]
     Active Substance: METOPROLOL
  12. LISINOPRIL. [Concomitant]
     Active Substance: LISINOPRIL

REACTIONS (9)
  - Pulmonary embolism [None]
  - Peripheral swelling [None]
  - Pruritus [None]
  - Heart rate increased [None]
  - Dyspnoea [None]
  - Respiratory disorder [None]
  - Headache [None]
  - Diarrhoea [None]
  - Rash [None]

NARRATIVE: CASE EVENT DATE: 20190109
